FAERS Safety Report 10141812 (Version 2)
Quarter: 2014Q2

REPORT INFORMATION
  Report Type: Spontaneous
  Country: DE (occurrence: DE)
  Receive Date: 20140429
  Receipt Date: 20140609
  Transmission Date: 20141212
  Serious: Yes (Other)
  Sender: FDA-Public Use
  Company Number: DE-PFIZER INC-2014113283

PATIENT
  Age: 72 Year
  Sex: Male

DRUGS (11)
  1. SUTENT [Suspect]
     Indication: METASTATIC RENAL CELL CARCINOMA
     Dosage: 50 MG, UNK
     Dates: start: 20120504, end: 201206
  2. SUTENT [Suspect]
     Dosage: UNK
     Dates: start: 201207
  3. SUTENT [Suspect]
     Dosage: 37.5 MG, (25 MG + 12.5 MG TABLETS)
     Dates: start: 2013
  4. SUTENT [Suspect]
     Dosage: 50 MG, ALTERNATE DAY
     Dates: start: 20140408
  5. SUTENT [Suspect]
     Dosage: 37.5 MG, UNK
     Dates: start: 201405
  6. AREDIA [Concomitant]
     Indication: METASTATIC RENAL CELL CARCINOMA
     Dosage: UNK
     Dates: end: 201206
  7. AREDIA [Concomitant]
     Dosage: UNK
     Dates: start: 201207, end: 201210
  8. DENOSUMAB [Concomitant]
     Indication: METASTATIC RENAL CELL CARCINOMA
     Dosage: EVERY 4 WEEKS
     Route: 058
     Dates: start: 201210
  9. EXFORGE [Concomitant]
     Dosage: 5 MG, AS NEEDED
  10. ACETYLSALICYLIC ACID [Concomitant]
  11. IDEOS [Concomitant]

REACTIONS (9)
  - Coronary artery disease [Unknown]
  - White blood cell count decreased [Unknown]
  - Fatigue [Unknown]
  - Ageusia [Unknown]
  - Thyroid function test abnormal [Unknown]
  - Decreased appetite [Unknown]
  - Gastrooesophageal reflux disease [Unknown]
  - Disease progression [Unknown]
  - Metastatic renal cell carcinoma [Unknown]
